FAERS Safety Report 17457183 (Version 1)
Quarter: 2020Q1

REPORT INFORMATION
  Report Type: Report from Study
  Country: NL (occurrence: NL)
  Receive Date: 20200225
  Receipt Date: 20200225
  Transmission Date: 20200409
  Serious: Yes (Other)
  Sender: FDA-Public Use
  Company Number: NL-MYLANLABS-2020M1019664

PATIENT
  Age: 26 Year
  Sex: Female

DRUGS (2)
  1. MERCAPTOPURINE. [Concomitant]
     Active Substance: MERCAPTOPURINE
     Dosage: 50MG, 1X/D
     Route: 048
     Dates: start: 20130115, end: 20160309
  2. ALLOPURINOL. [Suspect]
     Active Substance: ALLOPURINOL
     Indication: IRRITABLE BOWEL SYNDROME
     Dosage: 100MG, 1X/D
     Route: 048
     Dates: start: 20150917, end: 20160309

REACTIONS (1)
  - Pancytopenia [Recovered/Resolved]

NARRATIVE: CASE EVENT DATE: 20160309
